FAERS Safety Report 4348267-2 (Version None)
Quarter: 2004Q1

REPORT INFORMATION
  Report Type: 
  Country: None (occurrence: None)
  Receive Date: 20040329
  Receipt Date: 20040210
  Transmission Date: 20041129
  Serious: No
  Sender: FDA-Public Use
  Company Number: USA030844248

PATIENT
  Age: 18 Year
  Sex: Male
  Weight: 82 kg

DRUGS (3)
  1. STRATTERA [Suspect]
     Indication: ASPERGER'S DISORDER
     Dosage: 60 MG/DAY
     Dates: start: 20030801
  2. STRATTERA [Suspect]
     Indication: ATTENTION DEFICIT/HYPERACTIVITY DISORDER
     Dosage: 60 MG/DAY
     Dates: start: 20030801
  3. PAXIL [Concomitant]

REACTIONS (6)
  - ASTHENIA [None]
  - DISTURBANCE IN ATTENTION [None]
  - DRUG INEFFECTIVE [None]
  - HEADACHE [None]
  - LOGORRHOEA [None]
  - WEIGHT INCREASED [None]
